FAERS Safety Report 7108451-1 (Version None)
Quarter: 2010Q4

REPORT INFORMATION
  Report Type: 
  Country: None (occurrence: None)
  Receive Date: 20101117
  Receipt Date: 20101110
  Transmission Date: 20110411
  Serious: Yes (Other)
  Sender: FDA-Public Use
  Company Number: B0683734A

PATIENT
  Sex: Female

DRUGS (6)
  1. AUGMENTIN '125' [Suspect]
     Indication: BRONCHITIS
     Route: 048
     Dates: start: 20090601, end: 20090601
  2. NOVOMIX [Concomitant]
     Route: 065
  3. METFORMIN [Concomitant]
     Route: 065
  4. DILTIAZEM [Concomitant]
     Dosage: 300MG UNKNOWN
     Route: 048
  5. APROVEL [Concomitant]
     Dosage: 150MG UNKNOWN
     Route: 048
  6. PLAVIX [Concomitant]
     Route: 048

REACTIONS (9)
  - ANGIOEDEMA [None]
  - EXFOLIATIVE RASH [None]
  - PAIN IN EXTREMITY [None]
  - PAINFUL RESPIRATION [None]
  - PRURITUS [None]
  - RALES [None]
  - RASH MACULO-PAPULAR [None]
  - SKIN TEST POSITIVE [None]
  - TYPE IV HYPERSENSITIVITY REACTION [None]
